FAERS Safety Report 25754155 (Version 2)
Quarter: 2025Q3

REPORT INFORMATION
  Report Type: Report from Study
  Country: US (occurrence: US)
  Receive Date: 20250903
  Receipt Date: 20250918
  Transmission Date: 20251021
  Serious: Yes (Other)
  Sender: UNITED THERAPEUTICS
  Company Number: US-UNITED THERAPEUTICS-UNT-2025-016043

PATIENT
  Sex: Male

DRUGS (24)
  1. TREPROSTINIL SODIUM [Suspect]
     Active Substance: TREPROSTINIL SODIUM
     Indication: Pulmonary arterial hypertension
  2. TREPROSTINIL SODIUM [Suspect]
     Active Substance: TREPROSTINIL SODIUM
  3. TREPROSTINIL SODIUM [Suspect]
     Active Substance: TREPROSTINIL SODIUM
  4. TREPROSTINIL SODIUM [Suspect]
     Active Substance: TREPROSTINIL SODIUM
  5. REMODULIN [Suspect]
     Active Substance: TREPROSTINIL
     Indication: Pulmonary arterial hypertension
  6. REMODULIN [Suspect]
     Active Substance: TREPROSTINIL
  7. REMODULIN [Suspect]
     Active Substance: TREPROSTINIL
  8. REMODULIN [Suspect]
     Active Substance: TREPROSTINIL
     Indication: Pulmonary arterial hypertension
     Dates: start: 20250610, end: 20250611
  9. REMODULIN [Suspect]
     Active Substance: TREPROSTINIL
  10. REMODULIN [Suspect]
     Active Substance: TREPROSTINIL
  11. REMODULIN [Suspect]
     Active Substance: TREPROSTINIL
  12. REMODULIN [Suspect]
     Active Substance: TREPROSTINIL
  13. REMODULIN [Suspect]
     Active Substance: TREPROSTINIL
     Indication: Pulmonary arterial hypertension
  14. REMODULIN [Suspect]
     Active Substance: TREPROSTINIL
  15. REMODULIN [Suspect]
     Active Substance: TREPROSTINIL
  16. REMODULIN [Suspect]
     Active Substance: TREPROSTINIL
  17. REMODULIN [Suspect]
     Active Substance: TREPROSTINIL
  18. REMODULIN [Suspect]
     Active Substance: TREPROSTINIL
  19. REMODULIN [Suspect]
     Active Substance: TREPROSTINIL
  20. TYLENOL [Suspect]
     Active Substance: ACETAMINOPHEN
     Indication: Headache
  21. AMBRISENTAN [Concomitant]
     Active Substance: AMBRISENTAN
     Indication: Product used for unknown indication
  22. SOTATERCEPT [Concomitant]
     Active Substance: SOTATERCEPT
     Indication: Product used for unknown indication
  23. TADALAFIL [Concomitant]
     Active Substance: TADALAFIL
     Indication: Product used for unknown indication
  24. LIDOCAINE\PRILOCAINE [Concomitant]
     Active Substance: LIDOCAINE\PRILOCAINE
     Indication: Product used for unknown indication

REACTIONS (20)
  - Polyneuropathy [Not Recovered/Not Resolved]
  - Neuropathy peripheral [Recovered/Resolved]
  - Infusion site pain [Not Recovered/Not Resolved]
  - Infusion site injury [Unknown]
  - Nausea [Unknown]
  - Migraine [Unknown]
  - Pain in extremity [Unknown]
  - Peripheral swelling [Unknown]
  - Overdose [Unknown]
  - Headache [Unknown]
  - Pain [Unknown]
  - Temperature intolerance [Unknown]
  - Infusion site swelling [Recovering/Resolving]
  - Hyperhidrosis [Unknown]
  - Diarrhoea [Recovered/Resolved]
  - Incorrect drug administration rate [Recovered/Resolved]
  - Therapy non-responder [Unknown]
  - Device maintenance issue [Unknown]
  - Device dislocation [Not Recovered/Not Resolved]
  - Device adhesion issue [Unknown]

NARRATIVE: CASE EVENT DATE: 20250101
